FAERS Safety Report 7336331-5 (Version None)
Quarter: 2011Q1

REPORT INFORMATION
  Report Type: 
  Country: None (occurrence: None)
  Receive Date: 20110307
  Receipt Date: 20110228
  Transmission Date: 20110831
  Serious: Yes (Other)
  Sender: FDA-Public Use
  Company Number: JP-PFIZER INC-2010121128

PATIENT
  Age: 41 Year
  Sex: Female

DRUGS (2)
  1. SALAZOPYRIN [Suspect]
     Dosage: UNK
     Route: 054
  2. BIO THREE [Concomitant]
     Dosage: UNK

REACTIONS (1)
  - ARTHRITIS [None]
